FAERS Safety Report 5504915-2 (Version None)
Quarter: 2007Q4

REPORT INFORMATION
  Report Type: 
  Country: None (occurrence: None)
  Receive Date: 20071102
  Receipt Date: 20071025
  Transmission Date: 20080405
  Serious: Yes (Hospitalization, Other)
  Sender: FDA-Public Use
  Company Number: PHHO2007BR17868

PATIENT
  Age: 61 Year
  Sex: Female
  Weight: 80 kg

DRUGS (4)
  1. DIOVAN HCT [Suspect]
     Indication: HYPERTENSION
     Dosage: 160 / 25 MG
     Route: 048
     Dates: start: 20050101, end: 20060101
  2. DIOVAN HCT [Suspect]
     Dosage: UNK, NO TREATMENT
  3. MANIDIPINE [Concomitant]
  4. BAMIFIX [Concomitant]

REACTIONS (5)
  - CARDIO-RESPIRATORY ARREST [None]
  - HEADACHE [None]
  - MENTAL IMPAIRMENT [None]
  - NECK PAIN [None]
  - VISION BLURRED [None]
